FAERS Safety Report 6840007-8 (Version None)
Quarter: 2010Q3

REPORT INFORMATION
  Report Type: 
  Country: None (occurrence: None)
  Receive Date: 20100714
  Receipt Date: 20100708
  Transmission Date: 20110219
  Serious: Yes (Hospitalization, Disabling)
  Sender: FDA-Public Use
  Company Number: CH-ROCHE-711551

PATIENT
  Sex: Female
  Weight: 40 kg

DRUGS (7)
  1. ACTEMRA [Suspect]
     Route: 042
     Dates: start: 20090407
  2. ACTEMRA [Suspect]
     Route: 042
     Dates: start: 20100126
  3. ACTEMRA [Suspect]
     Route: 042
     Dates: start: 20100223
  4. ACTEMRA [Suspect]
     Route: 042
     Dates: start: 20100325
  5. ACTEMRA [Suspect]
     Route: 042
     Dates: start: 20100429
  6. ARAVA [Concomitant]
     Route: 048
  7. BONIVA [Concomitant]

REACTIONS (2)
  - MULTIPLE SCLEROSIS [None]
  - PSYCHOTIC DISORDER [None]
